FAERS Safety Report 4714603-8 (Version None)
Quarter: 2005Q3

REPORT INFORMATION
  Report Type: 
  Country: None (occurrence: None)
  Receive Date: 20050714
  Receipt Date: 20050714
  Transmission Date: 20060218
  Serious: Yes (Hospitalization)
  Sender: FDA-Public Use
  Company Number: None

PATIENT
  Age: 74 Year
  Sex: Female
  Weight: 66 kg

DRUGS (2)
  1. GEMZAR [Suspect]
     Indication: OVARIAN CANCER
     Dosage: 1520 DAY 1 AND 8 INTRAVENOU
     Route: 042
     Dates: start: 20050314, end: 20050707
  2. CARBOPLATIN [Suspect]
     Indication: OVARIAN CANCER
     Dosage: 400MG DAY 1 INTRAVENOU
     Route: 042
     Dates: start: 20050314, end: 20050628

REACTIONS (7)
  - CHILLS [None]
  - FEELING ABNORMAL [None]
  - HAEMOGLOBIN DECREASED [None]
  - NEUTROPENIA [None]
  - PLATELET COUNT DECREASED [None]
  - PYREXIA [None]
  - WHITE BLOOD CELL COUNT DECREASED [None]
